FAERS Safety Report 6267798-1 (Version None)
Quarter: 2009Q3

REPORT INFORMATION
  Report Type: 
  Country: None (occurrence: None)
  Receive Date: 20090714
  Receipt Date: 20090702
  Transmission Date: 20100115
  Serious: Yes (Other)
  Sender: FDA-Public Use
  Company Number: CA-PFIZER INC-2009235435

PATIENT
  Age: 81 Year

DRUGS (12)
  1. DILANTIN [Suspect]
     Indication: GRAND MAL CONVULSION
     Dosage: 300 MG, 1X/DAY
     Dates: start: 20071201
  2. DILANTIN [Suspect]
     Dosage: 350 MG, 1X/DAY
     Dates: start: 20090411
  3. DILANTIN [Suspect]
     Dosage: 400 MG, 1X/DAY
     Dates: start: 20090524
  4. DILANTIN [Suspect]
     Dosage: 450 MG, 1X/DAY
     Dates: start: 20090624
  5. COZAAR [Concomitant]
     Dosage: UNK
  6. SYNTHROID [Concomitant]
     Dosage: UNK
  7. METFORMIN [Concomitant]
     Dosage: UNK
  8. ASPIRIN [Concomitant]
     Dosage: 80 MG, UNK
  9. AGGRENOX [Concomitant]
     Dosage: UNK
  10. EZETROL [Concomitant]
     Dosage: UNK
  11. CALCIUM CARBONATE/COLECALCIFEROL [Concomitant]
     Dosage: UNK
  12. GLUCOSAMINE [Concomitant]
     Dosage: UNK

REACTIONS (2)
  - ANTICONVULSANT DRUG LEVEL BELOW THERAPEUTIC [None]
  - CONVULSION [None]
